FAERS Safety Report 9248924 (Version 2)
Quarter: 2013Q3

REPORT INFORMATION
  Report Type: Spontaneous
  Country: FR (occurrence: FR)
  Receive Date: 20130423
  Receipt Date: 20130701
  Transmission Date: 20140515
  Serious: Yes (Death, Hospitalization)
  Sender: FDA-Public Use
  Company Number: FR-AMGEN-FRASP2013027431

PATIENT
  Age: 52 Year
  Sex: Female
  Weight: 55 kg

DRUGS (7)
  1. XGEVA [Suspect]
     Indication: METASTATIC GASTRIC CANCER
     Dosage: 120, 28D
     Route: 058
     Dates: start: 20130320, end: 20130617
  2. XGEVA [Suspect]
     Indication: METASTASES TO BONE
  3. 5 FU [Concomitant]
     Indication: CHEMOTHERAPY
     Dosage: 2400 UNIT, 14D
     Dates: start: 201303
  4. OXALIPLATINE ACCORD [Concomitant]
     Indication: CHEMOTHERAPY
     Dosage: 120 UNIT, 14D
     Dates: start: 201303
  5. CACIT D3 [Concomitant]
     Indication: SUPPLEMENTATION THERAPY
     Dosage: 9 G, QD
     Route: 048
     Dates: start: 20130320
  6. OXYCONTIN [Concomitant]
     Indication: PAIN
     Dosage: 160 UNIT, QD
     Route: 048
     Dates: start: 201211
  7. FOLFOX-4 [Concomitant]
     Indication: METASTATIC GASTRIC CANCER
     Dosage: UNK
     Dates: start: 20130318

REACTIONS (6)
  - Syncope [Unknown]
  - Hypocalcaemia [Fatal]
  - Muscle twitching [Unknown]
  - Muscle spasms [Unknown]
  - Paraesthesia [Unknown]
  - Electrocardiogram change [Unknown]
